FAERS Safety Report 4560706-0 (Version None)
Quarter: 2005Q1

REPORT INFORMATION
  Report Type: 
  Country: None (occurrence: None)
  Receive Date: 20050126
  Receipt Date: 20050114
  Transmission Date: 20050727
  Serious: Yes (Hospitalization)
  Sender: FDA-Public Use
  Company Number: US-JNJFOC-20050104359

PATIENT
  Sex: Male

DRUGS (9)
  1. REMICADE [Suspect]
     Route: 042
  2. REMICADE [Suspect]
     Indication: CROHN'S DISEASE
     Route: 042
  3. ASACOL [Concomitant]
  4. PENTASA [Concomitant]
  5. PREDNISONE [Concomitant]
  6. HYDROCODONE [Concomitant]
  7. ENTOCORT [Concomitant]
  8. DIAZEPAM [Concomitant]
  9. ALLEGRA [Concomitant]

REACTIONS (3)
  - ARTHRALGIA [None]
  - STREPTOCOCCAL INFECTION [None]
  - WHITE BLOOD CELL COUNT INCREASED [None]
